FAERS Safety Report 7249204-3 (Version None)
Quarter: 2011Q1

REPORT INFORMATION
  Report Type: 
  Country: None (occurrence: None)
  Receive Date: 20110128
  Receipt Date: 20101202
  Transmission Date: 20110831
  Serious: Yes (Other)
  Sender: FDA-Public Use
  Company Number: IT-BAYER-2010-001453

PATIENT
  Sex: Male

DRUGS (1)
  1. NEXAVAR [Suspect]
     Dosage: 800 MG, QD
     Route: 048
     Dates: start: 20091026, end: 20091109

REACTIONS (1)
  - HEPATITIS TOXIC [None]
